FAERS Safety Report 8270898-8 (Version None)
Quarter: 2012Q2

REPORT INFORMATION
  Report Type: 
  Country: None (occurrence: None)
  Receive Date: 20120410
  Receipt Date: 20120410
  Transmission Date: 20120825
  Serious: No
  Sender: FDA-Public Use
  Company Number: None

PATIENT
  Age: 45 Year
  Sex: Female
  Weight: 94.8 kg

DRUGS (1)
  1. ALLI [Suspect]
     Indication: OBESITY
     Route: 048
     Dates: start: 20120330, end: 20120407

REACTIONS (1)
  - PRODUCT COUNTERFEIT [None]
